FAERS Safety Report 8168991-3 (Version None)
Quarter: 2012Q1

REPORT INFORMATION
  Report Type: 
  Country: None (occurrence: None)
  Receive Date: 20120227
  Receipt Date: 20120217
  Transmission Date: 20120608
  Serious: Yes (Other)
  Sender: FDA-Public Use
  Company Number: PHHY2012US014105

PATIENT
  Age: 62 Year
  Sex: Female

DRUGS (1)
  1. LISINOPRIL [Suspect]
     Indication: HYPERTENSION

REACTIONS (5)
  - RASH PRURITIC [None]
  - PAPULE [None]
  - LICHENOID KERATOSIS [None]
  - SKIN PLAQUE [None]
  - LICHEN PLANUS [None]
